FAERS Safety Report 24903148 (Version 1)
Quarter: 2025Q1

REPORT INFORMATION
  Report Type: Spontaneous
  Country: US (occurrence: US)
  Receive Date: 20250130
  Receipt Date: 20250130
  Transmission Date: 20250408
  Serious: Yes (Death, Hospitalization)
  Sender: GRIFOLS
  Company Number: US-IGSA-BIG0032642

PATIENT
  Age: 35 Year
  Sex: Female

DRUGS (1)
  1. GAMUNEX-C [Suspect]
     Active Substance: HUMAN IMMUNOGLOBULIN G
     Indication: Chronic inflammatory demyelinating polyradiculoneuropathy
     Dosage: 120 GRAM, Q.M.T.
     Route: 042
     Dates: start: 20211018

REACTIONS (1)
  - Death [Fatal]

NARRATIVE: CASE EVENT DATE: 20250114
